FAERS Safety Report 11702701 (Version 2)
Quarter: 2016Q1

REPORT INFORMATION
  Report Type: Spontaneous
  Country: US (occurrence: US)
  Receive Date: 20151105
  Receipt Date: 20160125
  Transmission Date: 20160525
  Serious: Yes (Hospitalization, Other)
  Sender: FDA-Public Use
  Company Number: US-PFIZER INC-2015375611

PATIENT
  Age: 56 Year
  Sex: Male

DRUGS (10)
  1. ZYPREXA [Concomitant]
     Active Substance: OLANZAPINE
     Indication: SOCIAL ANXIETY DISORDER
     Dosage: UNK
     Dates: start: 20090127
  2. TESTIM [Suspect]
     Active Substance: TESTOSTERONE
     Indication: HORMONE REPLACEMENT THERAPY
  3. FOSINOPRIL [Concomitant]
     Active Substance: FOSINOPRIL
     Indication: HYPERTENSION
     Dosage: UNK
     Dates: start: 20090113
  4. DEPO-TESTOSTERONE [Suspect]
     Active Substance: TESTOSTERONE CYPIONATE
     Indication: FATIGUE
  5. TESTIM [Suspect]
     Active Substance: TESTOSTERONE
     Indication: FATIGUE
     Dosage: UNK, DAILY
     Dates: start: 20100809, end: 20101010
  6. TRAMADOL. [Concomitant]
     Active Substance: TRAMADOL
     Indication: PAIN
     Dosage: UNK
     Dates: start: 20090429, end: 20120817
  7. OLANZAPINE. [Concomitant]
     Active Substance: OLANZAPINE
     Indication: SOCIAL ANXIETY DISORDER
     Dosage: UNK
     Dates: start: 20111215, end: 20141119
  8. CRESTOR [Concomitant]
     Active Substance: ROSUVASTATIN CALCIUM
     Indication: BLOOD CHOLESTEROL INCREASED
     Dosage: UNK
     Dates: start: 20090105
  9. DEPO-TESTOSTERONE [Suspect]
     Active Substance: TESTOSTERONE CYPIONATE
     Indication: HORMONE REPLACEMENT THERAPY
     Dosage: UNK, 2X/WEEK (BIWEEKLY)
     Dates: start: 20120503, end: 20120827
  10. TAMSULOSIN [Concomitant]
     Active Substance: TAMSULOSIN
     Indication: BENIGN PROSTATIC HYPERPLASIA
     Dosage: UNK
     Dates: start: 20100316, end: 20130529

REACTIONS (2)
  - Myocardial infarction [Unknown]
  - Cardiac disorder [Not Recovered/Not Resolved]

NARRATIVE: CASE EVENT DATE: 201208
